FAERS Safety Report 8235157-8 (Version None)
Quarter: 2012Q1

REPORT INFORMATION
  Report Type: 
  Country: None (occurrence: None)
  Receive Date: 20120322
  Receipt Date: 20120307
  Transmission Date: 20120608
  Serious: Yes (Death)
  Sender: FDA-Public Use
  Company Number: 2012-107

PATIENT
  Age: 34 Year
  Sex: Female

DRUGS (1)
  1. FAZACLO ODT [Suspect]
     Dosage: 25-900 MG, QD, ORAL
     Route: 048
     Dates: start: 20070611, end: 20120306

REACTIONS (1)
  - DEATH [None]
